FAERS Safety Report 10501185 (Version 1)
Quarter: 2014Q4

REPORT INFORMATION
  Report Type: Spontaneous
  Country: US (occurrence: None)
  Receive Date: 20141006
  Receipt Date: 20141006
  Transmission Date: 20150528
  Serious: Yes (Other)
  Sender: FDA-Public Use
  Company Number: None

PATIENT
  Age: 38 Year
  Sex: Male
  Weight: 87.09 kg

DRUGS (1)
  1. OXYCODONE/ACETAMINOPHEN [Suspect]
     Active Substance: ACETAMINOPHEN\OXYCODONE HYDROCHLORIDE
     Indication: BACK PAIN
     Dosage: I TAKE 2 PILLS EVERY 4 HOURS, FOUR TIMES DAILY, TAKEN BY MOUTH
     Route: 048
     Dates: start: 20140302, end: 20141002

REACTIONS (6)
  - Nausea [None]
  - Inadequate analgesia [None]
  - Depression [None]
  - Vomiting [None]
  - Headache [None]
  - Anxiety [None]

NARRATIVE: CASE EVENT DATE: 20141003
